FAERS Safety Report 21443451 (Version 1)
Quarter: 2022Q4

REPORT INFORMATION
  Report Type: Spontaneous
  Country: US (occurrence: US)
  Receive Date: 20221012
  Receipt Date: 20221012
  Transmission Date: 20230113
  Serious: Yes (Other)
  Sender: FDA-Public Use
  Company Number: US-BRISTOL-MYERS SQUIBB COMPANY-2022-117845

PATIENT
  Age: 82 Year
  Sex: Female

DRUGS (33)
  1. REVLIMID [Suspect]
     Active Substance: LENALIDOMIDE
     Indication: Plasma cell myeloma
     Dosage: DAILY
     Route: 048
  2. REVLIMID [Suspect]
     Active Substance: LENALIDOMIDE
     Route: 048
     Dates: start: 20220617, end: 20221006
  3. REVLIMID [Suspect]
     Active Substance: LENALIDOMIDE
     Route: 048
     Dates: start: 20211117, end: 20220617
  4. REVLIMID [Suspect]
     Active Substance: LENALIDOMIDE
     Route: 048
     Dates: start: 20201023, end: 20201201
  5. REVLIMID [Suspect]
     Active Substance: LENALIDOMIDE
     Route: 048
     Dates: start: 20201201, end: 20210708
  6. TYLENOL PM EXTRA STRENGTH [Concomitant]
     Active Substance: ACETAMINOPHEN\DIPHENHYDRAMINE HYDROCHLORIDE
     Dosage: 1000-50
     Route: 048
     Dates: start: 20211119, end: 20220526
  7. XARELTO [Concomitant]
     Active Substance: RIVAROXABAN
     Dosage: DAILY
     Route: 048
     Dates: start: 20220526, end: 20221006
  8. MAPAP [Concomitant]
     Active Substance: ACETAMINOPHEN
     Dosage: 160MG/5ML DAILY
     Route: 048
     Dates: start: 20220526, end: 20221006
  9. TRAMADOL HYDROCHLORIDE [Concomitant]
     Active Substance: TRAMADOL HYDROCHLORIDE
     Dosage: DAILY
     Route: 048
     Dates: start: 20220526, end: 20221006
  10. LEXAPRO [Concomitant]
     Active Substance: ESCITALOPRAM OXALATE
     Route: 048
     Dates: start: 20211119, end: 20220526
  11. VALACYCLOVIR HYDROCHLORIDE [Concomitant]
     Active Substance: VALACYCLOVIR HYDROCHLORIDE
     Route: 048
     Dates: start: 20211119, end: 20221006
  12. TRAZODONE HYDROCHLORIDE [Concomitant]
     Active Substance: TRAZODONE HYDROCHLORIDE
     Route: 048
     Dates: start: 20211119, end: 20221006
  13. ROBITUSSIN PEAK COLD COUGH+CHEST CONGESTION DM [Concomitant]
     Dosage: 2TABLESPOON
     Route: 048
  14. ESCITALOPRAM [Concomitant]
     Active Substance: ESCITALOPRAM OXALATE
     Route: 048
     Dates: start: 20220526, end: 20221006
  15. METAMUCIL [Concomitant]
     Active Substance: PLANTAGO SEED
     Route: 048
     Dates: start: 20220526, end: 20220606
  16. ALPRAZOLAM [Concomitant]
     Active Substance: ALPRAZOLAM
     Route: 048
     Dates: start: 20201023, end: 20220526
  17. BENZTROPINE MESYLATE [Concomitant]
     Active Substance: BENZTROPINE MESYLATE
     Route: 048
     Dates: start: 20201023, end: 20220526
  18. CALCIUM CARBONATE [Concomitant]
     Active Substance: CALCIUM CARBONATE
     Dosage: 500-400
     Route: 048
     Dates: start: 20201023, end: 20220526
  19. PERIDEX [CHLORHEXIDINE GLUCONATE] [Concomitant]
     Route: 048
     Dates: start: 20201023, end: 20220526
  20. CRANBERRY JUICE [Concomitant]
     Active Substance: CRANBERRY JUICE
     Route: 048
     Dates: start: 20201023, end: 20220526
  21. DEXAMETHASONE [Concomitant]
     Active Substance: DEXAMETHASONE
     Route: 048
     Dates: start: 20201023, end: 20220526
  22. LEXAPRO [Concomitant]
     Active Substance: ESCITALOPRAM OXALATE
     Route: 048
     Dates: start: 20201023, end: 20220526
  23. MUCINEX D [Concomitant]
     Active Substance: GUAIFENESIN\PSEUDOEPHEDRINE HYDROCHLORIDE
     Dosage: 60-600MG
     Route: 048
     Dates: start: 20201023, end: 20220526
  24. CREON [Concomitant]
     Active Substance: PANCRELIPASE AMYLASE\PANCRELIPASE LIPASE\PANCRELIPASE PROTEASE
     Dosage: 3600 UNITS
     Route: 048
     Dates: start: 20201023
  25. LISINOPRIL [Concomitant]
     Active Substance: LISINOPRIL
     Route: 048
     Dates: start: 20201023
  26. LOPERAMIDE HYDROCHLORIDE [Concomitant]
     Active Substance: LOPERAMIDE HYDROCHLORIDE
     Dosage: 1MG/ML
     Route: 048
     Dates: start: 20201023
  27. LORAZEPAM [Concomitant]
     Active Substance: LORAZEPAM
     Route: 048
     Dates: start: 20201023
  28. MELATONIN [Concomitant]
     Active Substance: MELATONIN
     Route: 048
     Dates: start: 20201023
  29. THERAGRAN-M [MINERALS NOS;VITAMINS NOS] [Concomitant]
     Route: 048
     Dates: start: 20220526, end: 20221006
  30. KONSYL ORIGINAL FORMULA PSYLLIUM FIBER [Concomitant]
     Active Substance: PSYLLIUM HUSK
     Dosage: DAILY
     Route: 048
     Dates: start: 20220526, end: 20221006
  31. SEROQUEL [Concomitant]
     Active Substance: QUETIAPINE FUMARATE
     Route: 048
     Dates: start: 20220526, end: 20221006
  32. ZINC OXIDE [Concomitant]
     Active Substance: ZINC OXIDE
     Dosage: EX
     Route: 065
     Dates: start: 20220526, end: 20221006
  33. ZIPRASIDONE HYDROCHLORIDE [Concomitant]
     Active Substance: ZIPRASIDONE HYDROCHLORIDE
     Route: 048
     Dates: start: 20220526, end: 20221006

REACTIONS (1)
  - Neutropenia [Unknown]

NARRATIVE: CASE EVENT DATE: 20221006
